FAERS Safety Report 19991879 (Version 2)
Quarter: 2022Q1

REPORT INFORMATION
  Report Type: Spontaneous
  Country: US (occurrence: US)
  Receive Date: 20211025
  Receipt Date: 20220120
  Transmission Date: 20220423
  Serious: No
  Sender: FDA-Public Use
  Company Number: US-PFIZER INC-2021670612

PATIENT
  Age: 40 Year
  Sex: Male
  Weight: 109.29 kg

DRUGS (7)
  1. XELJANZ XR [Suspect]
     Active Substance: TOFACITINIB CITRATE
     Indication: Psoriatic arthropathy
     Dosage: 11 MG, DAILY
     Route: 048
     Dates: start: 20210304
  2. PERCOCET [Concomitant]
     Active Substance: ACETAMINOPHEN\OXYCODONE HYDROCHLORIDE
     Dosage: 325 MG
  3. TRULICITY [Concomitant]
     Active Substance: DULAGLUTIDE
     Dosage: 0.75MG/0.5 PEN INJCTR,
  4. METFORMIN HYDROCHLORIDE [Concomitant]
     Active Substance: METFORMIN HYDROCHLORIDE
  5. ASPIRIN [Concomitant]
     Active Substance: ASPIRIN
     Dosage: 325 MG
  6. LISINOPRIL [Concomitant]
     Active Substance: LISINOPRIL
     Dosage: 10 MG
  7. VITAMINS NOS [Concomitant]
     Active Substance: VITAMINS
     Dosage: UNK

REACTIONS (6)
  - Drug ineffective [Unknown]
  - Product dose omission issue [Unknown]
  - Pre-existing condition improved [Unknown]
  - Pain [Unknown]
  - Breath odour [Not Recovered/Not Resolved]
  - Dry mouth [Not Recovered/Not Resolved]

NARRATIVE: CASE EVENT DATE: 20210101
